FAERS Safety Report 7295021-8 (Version None)
Quarter: 2011Q1

REPORT INFORMATION
  Report Type: 
  Country: None (occurrence: None)
  Receive Date: 20110216
  Receipt Date: 20110209
  Transmission Date: 20110831
  Serious: Yes (Hospitalization)
  Sender: FDA-Public Use
  Company Number: US-BRISTOL-MYERS SQUIBB COMPANY-15541311

PATIENT
  Age: 70 Year
  Sex: Female
  Weight: 75 kg

DRUGS (7)
  1. AMITRIPTYLINE [Concomitant]
     Indication: DEPRESSION
  2. NAPROXEN [Concomitant]
     Indication: ARTHRITIS
     Dosage: EC NAPROXEN
  3. CYCLOPHOSPHAMIDE [Suspect]
     Indication: BREAST CANCER
     Dosage: RECENT DOSE ON 31JAN11.COURSE NO:C1
     Dates: start: 20110131
  4. PLAVIX [Concomitant]
     Indication: TRANSIENT ISCHAEMIC ATTACK
     Dates: start: 20090101
  5. METFORMIN HCL [Concomitant]
     Indication: DIABETES MELLITUS
  6. IXABEPILONE [Suspect]
     Indication: BREAST CANCER
     Dosage: RECENT DOSE ON 31JAN11.COURSE NO:C1
     Dates: start: 20110131
  7. EXFORGE [Concomitant]
     Indication: HYPERTENSION

REACTIONS (2)
  - URINARY TRACT INFECTION [None]
  - BACK PAIN [None]
